FAERS Safety Report 14391005 (Version 1)
Quarter: 2018Q1

REPORT INFORMATION
  Report Type: Spontaneous
  Country: US (occurrence: US)
  Receive Date: 20180116
  Receipt Date: 20180116
  Transmission Date: 20180509
  Serious: No
  Sender: FDA-Public Use
  Company Number: US-TEVA-2018-US-844204

PATIENT
  Sex: Female

DRUGS (4)
  1. BETAMETHASONE. [Concomitant]
     Active Substance: BETAMETHASONE
  2. CLOTRIMAZOLE. [Suspect]
     Active Substance: CLOTRIMAZOLE
     Indication: BODY TINEA
  3. CLOTRIMAZOLE. [Suspect]
     Active Substance: CLOTRIMAZOLE
     Indication: TINEA PEDIS
  4. CLOTRIMAZOLE. [Suspect]
     Active Substance: CLOTRIMAZOLE
     Indication: TINEA CRURIS
     Dosage: 1%/0.05%
     Route: 065

REACTIONS (2)
  - Drug ineffective [Unknown]
  - Erythema [Not Recovered/Not Resolved]
